FAERS Safety Report 22272058 (Version 2)
Quarter: 2023Q2

REPORT INFORMATION
  Report Type: Spontaneous
  Country: GB (occurrence: GB)
  Receive Date: 20230502
  Receipt Date: 20230521
  Transmission Date: 20230721
  Serious: Yes (Other)
  Sender: FDA-Public Use
  Company Number: GB-ORGANON-O2304GBR002716

PATIENT
  Sex: Female

DRUGS (1)
  1. NEXPLANON [Suspect]
     Active Substance: ETONOGESTREL
     Dosage: 1 DOSAGE FORM, 1 IMPLANT FOR 3 YEARS
     Route: 059
     Dates: start: 20210410

REACTIONS (3)
  - Ectopic pregnancy with contraceptive device [Unknown]
  - Pregnancy with implant contraceptive [Unknown]
  - Unintended pregnancy [Unknown]
